FAERS Safety Report 10020878 (Version 4)
Quarter: 2015Q4

REPORT INFORMATION
  Report Type: Spontaneous
  Country: US (occurrence: US)
  Receive Date: 20140319
  Receipt Date: 20151106
  Transmission Date: 20160304
  Serious: Yes (Other)
  Sender: FDA-Public Use
  Company Number: US-ASTRAZENECA-2014SE18004

PATIENT
  Age: 69 Year
  Sex: Female
  Weight: 60.8 kg

DRUGS (6)
  1. SIMVASTATIN. [Concomitant]
     Active Substance: SIMVASTATIN
     Indication: BLOOD CHOLESTEROL ABNORMAL
  2. FASLODEX [Suspect]
     Active Substance: FULVESTRANT
     Indication: BREAST CANCER METASTATIC
     Route: 030
     Dates: start: 201312
  3. FASLODEX [Suspect]
     Active Substance: FULVESTRANT
     Indication: BREAST CANCER METASTATIC
     Dosage: TWO 250 MG INTRAMUSCULAR INJECTIONS IN EACH BUTTOCK EVERY 28 DAYS
     Route: 030
     Dates: start: 201401
  4. PRAVASTATIN [Concomitant]
     Active Substance: PRAVASTATIN\PRAVASTATIN SODIUM
  5. LEVOTHYROXINE. [Concomitant]
     Active Substance: LEVOTHYROXINE
     Indication: HYPOTHYROIDISM
  6. XGEVA [Concomitant]
     Active Substance: DENOSUMAB
     Indication: BONE DISORDER
     Dosage: EVERY 3 MONTHS

REACTIONS (17)
  - Dyspnoea [Unknown]
  - Fatigue [Unknown]
  - Dizziness [Not Recovered/Not Resolved]
  - Blunted affect [Not Recovered/Not Resolved]
  - Pyrexia [Unknown]
  - Injection site pain [Unknown]
  - Bone cancer [Unknown]
  - Constipation [Unknown]
  - Hot flush [Unknown]
  - Depression [Unknown]
  - Insomnia [Unknown]
  - Neuropathy peripheral [Unknown]
  - Chills [Unknown]
  - Nausea [Recovered/Resolved]
  - Tooth discolouration [Unknown]
  - Burning sensation [Unknown]
  - Vomiting [Recovered/Resolved]

NARRATIVE: CASE EVENT DATE: 2014
